FAERS Safety Report 4613544-4 (Version None)
Quarter: 2005Q1

REPORT INFORMATION
  Report Type: 
  Country: None (occurrence: None)
  Receive Date: 20050318
  Receipt Date: 20050318
  Transmission Date: 20050727
  Serious: Yes (Other)
  Sender: FDA-Public Use
  Company Number: None

PATIENT
  Age: 63 Year
  Sex: Male
  Weight: 87.5 kg

DRUGS (1)
  1. OCTREOTIDE [Suspect]
     Indication: ACROMEGALY
     Dosage: 50 MCG TID SQ
     Route: 058

REACTIONS (4)
  - DRUG TOLERANCE DECREASED [None]
  - NAUSEA [None]
  - PHARMACEUTICAL PRODUCT COMPLAINT [None]
  - VOMITING [None]
